FAERS Safety Report 4580277-2 (Version None)
Quarter: 2005Q1

REPORT INFORMATION
  Report Type: 
  Country: None (occurrence: None)
  Receive Date: 20050214
  Receipt Date: 20040112
  Transmission Date: 20050727
  Serious: Yes (Hospitalization, Other)
  Sender: FDA-Public Use
  Company Number: US-BRISTOL-MYERS SQUIBB COMPANY-12475752

PATIENT
  Age: 86 Year
  Sex: Male

DRUGS (17)
  1. METOPROLOL TARTRATE [Suspect]
  2. FUROSEMIDE [Suspect]
     Indication: CORONARY ARTERY DISEASE
  3. FUROSEMIDE [Suspect]
     Indication: PAIN
  4. FUROSEMIDE [Suspect]
     Indication: HYPERTENSION
  5. PRINIVIL [Suspect]
     Route: 048
  6. NIFEDIPINE [Suspect]
  7. ISOSORBIDE DINITRATE [Suspect]
  8. MAGNESIUM [Concomitant]
  9. ZOCOR [Concomitant]
  10. CALCIUM + VITAMIN D [Concomitant]
  11. DOCUSATE SODIUM [Concomitant]
  12. DORZOLAMIDE HCL [Concomitant]
  13. HEPARIN [Concomitant]
  14. LATANOPROST [Concomitant]
  15. NITROGLYCERIN [Concomitant]
  16. RABEPRAZOLE SODIUM [Concomitant]
  17. TEMAZEPAM [Concomitant]

REACTIONS (1)
  - HYPOTENSION [None]
